FAERS Safety Report 9537760 (Version 1)
Quarter: 2013Q3

REPORT INFORMATION
  Report Type: Spontaneous
  Country: NO (occurrence: NO)
  Receive Date: 20130919
  Receipt Date: 20130919
  Transmission Date: 20140515
  Serious: Yes (Hospitalization)
  Sender: FDA-Public Use
  Company Number: NO-ASTRAZENECA-2013SE68660

PATIENT
  Age: 69 Year
  Sex: Male
  Weight: 102 kg

DRUGS (11)
  1. BRILIQUE [Suspect]
     Indication: THROMBOSIS PROPHYLAXIS
     Route: 048
     Dates: start: 20130612, end: 20130612
  2. FINASTERID (ACTAVIS) [Concomitant]
     Indication: PROSTATIC DISORDER
     Dates: start: 20130110, end: 20130819
  3. NITROGLYCERIN [Concomitant]
     Indication: ANGINA PECTORIS
     Dates: start: 20130613, end: 20130813
  4. CALSIUM [Concomitant]
     Indication: MINERAL SUPPLEMENTATION
  5. ZOLPIDEM (ACTAVIS) [Concomitant]
     Indication: INSOMNIA
     Dates: start: 20010801, end: 20130813
  6. ALBYL-E [Concomitant]
     Dates: start: 20130613
  7. METFORMIN (ACTAVIS) [Concomitant]
     Indication: TYPE 2 DIABETES MELLITUS
     Dates: start: 20130813, end: 20130819
  8. LIPITOR [Concomitant]
     Indication: BLOOD CHOLESTEROL INCREASED
     Dates: start: 20130813, end: 20130813
  9. CETIRIZIN (RATIOPHARM) [Concomitant]
     Indication: HYPERSENSITIVITY
     Dates: start: 20130813, end: 20130813
  10. CALSIUM CARBONATE [Concomitant]
     Indication: MINERAL SUPPLEMENTATION
  11. LOSARTAN (TEVA) [Concomitant]
     Indication: HYPERTENSION
     Dates: start: 20130811, end: 20130814

REACTIONS (5)
  - Skin discolouration [Recovered/Resolved]
  - Suffocation feeling [Recovered/Resolved]
  - Sleep disorder due to general medical condition, insomnia type [Recovered/Resolved]
  - Dyspnoea [Recovered/Resolved]
  - Phobia [Unknown]
